FAERS Safety Report 18547662 (Version 1)
Quarter: 2020Q4

REPORT INFORMATION
  Report Type: Spontaneous
  Country: BR (occurrence: BR)
  Receive Date: 20201126
  Receipt Date: 20201126
  Transmission Date: 20210114
  Serious: Yes (Hospitalization, Other)
  Sender: FDA-Public Use
  Company Number: BR-LEADINGPHARMA-BR-2020LEALIT00171

PATIENT
  Age: 7 Month
  Sex: Female
  Weight: 4.5 kg

DRUGS (1)
  1. FUROSEMIDE TABLETS USP [Suspect]
     Active Substance: FUROSEMIDE
     Indication: PERITONEAL DIALYSIS
     Route: 065

REACTIONS (1)
  - Drug ineffective [Unknown]
